FAERS Safety Report 10181493 (Version 1)
Quarter: 2014Q2

REPORT INFORMATION
  Report Type: Spontaneous
  Country: MX (occurrence: MX)
  Receive Date: 20140519
  Receipt Date: 20140519
  Transmission Date: 20141212
  Serious: Yes (Death)
  Sender: FDA-Public Use
  Company Number: MX-PFIZER INC-2014133192

PATIENT
  Age: 31 Year
  Sex: Male

DRUGS (1)
  1. LIPITOR [Suspect]
     Indication: CARDIAC DISORDER
     Dosage: 1 DF, 1X/DAY IN THE MORNINGS
     Route: 048
     Dates: start: 201403

REACTIONS (4)
  - Ventricular failure [Fatal]
  - Congestive cardiomyopathy [Fatal]
  - Heart injury [Fatal]
  - Off label use [Unknown]
